FAERS Safety Report 9046289 (Version 2)
Quarter: 2013Q1

REPORT INFORMATION
  Report Type: Spontaneous
  Country: IT (occurrence: IT)
  Receive Date: 20130201
  Receipt Date: 20130313
  Transmission Date: 20140127
  Serious: Yes (Other)
  Sender: FDA-Public Use
  Company Number: IT-MERCK-1301ITA013605

PATIENT
  Age: 44 Year
  Sex: Female
  Weight: 160 kg

DRUGS (5)
  1. ESMERON [Suspect]
     Indication: NEUROMUSCULAR BLOCKADE
     Dosage: 100 MG, DAILY
     Route: 042
     Dates: start: 20110308, end: 20110308
  2. PROPOFOL [Concomitant]
     Indication: ANAESTHESIA
     Dosage: 600 MG, DAILY
     Route: 042
     Dates: start: 20110308, end: 20110308
  3. REMIFENTANIL HYDROCHLORIDE [Concomitant]
     Indication: ANAESTHESIA
     Dosage: 0.5 MG, DAILY
     Route: 042
     Dates: start: 20110308, end: 20110308
  4. ONDANSETRON [Concomitant]
     Indication: PROPHYLAXIS OF NAUSEA AND VOMITING
     Dosage: 8 MG, DAILY
     Route: 042
     Dates: start: 20110308, end: 20110308
  5. IBUPROFEN [Concomitant]
     Indication: PAIN
     Dosage: 200 MG, DAILY
     Route: 042
     Dates: start: 20110308, end: 20110308

REACTIONS (1)
  - Neuromuscular block prolonged [Recovered/Resolved]
